FAERS Safety Report 16180329 (Version 6)
Quarter: 2020Q1

REPORT INFORMATION
  Report Type: Spontaneous
  Country: US (occurrence: US)
  Receive Date: 20190410
  Receipt Date: 20200113
  Transmission Date: 20200409
  Serious: Yes (Other)
  Sender: FDA-Public Use
  Company Number: US-SA-2018SA164706

PATIENT
  Age: 66 Year
  Sex: Female

DRUGS (2)
  1. DUPIXENT [Suspect]
     Active Substance: DUPILUMAB
     Indication: DERMATITIS ATOPIC
     Dosage: 300 MG, QOW
     Route: 058
     Dates: start: 20180131
  2. FLUTICASONE [FLUTICASONE PROPIONATE] [Concomitant]
     Dosage: UNK UNK, QD
     Route: 055
     Dates: start: 20191017

REACTIONS (8)
  - Cataract [Unknown]
  - Nephrolithiasis [Unknown]
  - Product dose omission [Unknown]
  - Middle ear effusion [Not Recovered/Not Resolved]
  - Cholecystectomy [Unknown]
  - Functional gastrointestinal disorder [Unknown]
  - Diplopia [Unknown]
  - Product dose omission [Unknown]

NARRATIVE: CASE EVENT DATE: 20191205
